FAERS Safety Report 13446863 (Version 2)
Quarter: 2017Q2

REPORT INFORMATION
  Report Type: Spontaneous
  Country: IT (occurrence: IT)
  Receive Date: 20170417
  Receipt Date: 20170424
  Transmission Date: 20170830
  Serious: Yes (Hospitalization)
  Sender: FDA-Public Use
  Company Number: IT-BRACCO-006290

PATIENT
  Age: 75 Year
  Sex: Female

DRUGS (3)
  1. SONOVUE [Suspect]
     Active Substance: SULFUR HEXAFLUORIDE
     Indication: ULTRASOUND SCAN
     Route: 042
     Dates: start: 20170405, end: 20170405
  2. TIKLID [Concomitant]
     Active Substance: TICLOPIDINE HYDROCHLORIDE
  3. CARDIOASPIRIN [Concomitant]
     Active Substance: ASPIRIN

REACTIONS (5)
  - Burning sensation [Recovered/Resolved]
  - Flushing [Recovered/Resolved]
  - Tremor [Recovered/Resolved]
  - Hypotension [Recovered/Resolved]
  - Hyperhidrosis [Recovered/Resolved]

NARRATIVE: CASE EVENT DATE: 20170405
